FAERS Safety Report 6397079-7 (Version None)
Quarter: 2009Q4

REPORT INFORMATION
  Report Type: 
  Country: None (occurrence: None)
  Receive Date: 20091012
  Receipt Date: 20091012
  Transmission Date: 20100525
  Serious: Yes (Hospitalization)
  Sender: FDA-Public Use
  Company Number: JP-PFIZER INC-2009279830

PATIENT

DRUGS (5)
  1. CAMPTOSAR [Suspect]
     Indication: COLORECTAL CANCER
     Dosage: 180 MG/M2, UNK
     Route: 041
     Dates: start: 20090610, end: 20090918
  2. CALCIUM LEVOFOLINATE [Concomitant]
     Indication: COLORECTAL CANCER
     Dosage: 200 MG/M2, UNK
     Route: 041
     Dates: start: 20090610, end: 20090918
  3. FLUOROURACIL [Concomitant]
     Indication: COLORECTAL CANCER
     Dosage: 400 MG/M2, UNK
     Route: 040
     Dates: start: 20090610, end: 20090918
  4. FLUOROURACIL [Concomitant]
     Dosage: 2400 MG/M2, UNK
     Route: 041
     Dates: start: 20090610, end: 20090918
  5. AVASTIN [Concomitant]
     Indication: COLORECTAL CANCER
     Dosage: 5 MG/KG, UNK
     Route: 041
     Dates: start: 20090610, end: 20090918

REACTIONS (1)
  - CONVULSION [None]
